FAERS Safety Report 24241640 (Version 2)
Quarter: 2024Q3

REPORT INFORMATION
  Report Type: Report from Study
  Country: US (occurrence: US)
  Receive Date: 20240823
  Receipt Date: 20240927
  Transmission Date: 20241016
  Serious: Yes (Hospitalization)
  Sender: ROCHE
  Company Number: US-ROCHE-10000017496

PATIENT
  Age: 79 Year
  Sex: Female
  Weight: 52.62 kg

DRUGS (2)
  1. ACTEMRA [Suspect]
     Active Substance: TOCILIZUMAB
     Indication: Rheumatoid arthritis
     Dosage: INJECT 0.9 ML (162 MG TOTAL) UNDER THE SKIN EVERY 14 (FOURTEEN) DAYS.
     Route: 058
  2. ACTEMRA [Suspect]
     Active Substance: TOCILIZUMAB

REACTIONS (2)
  - Cardiac failure [Unknown]
  - Dyspnoea [Unknown]
